FAERS Safety Report 7214690-1 (Version None)
Quarter: 2011Q1

REPORT INFORMATION
  Report Type: 
  Country: None (occurrence: None)
  Receive Date: 20110107
  Receipt Date: 20091112
  Transmission Date: 20110831
  Serious: No
  Sender: FDA-Public Use
  Company Number: A0816779A

PATIENT
  Age: 74 Year
  Sex: Female

DRUGS (10)
  1. LOVAZA [Suspect]
     Dosage: 2CAP PER DAY
     Route: 048
     Dates: start: 20090616, end: 20090630
  2. RED YEAST RICE [Concomitant]
  3. GINKO [Concomitant]
  4. VITAMIN E [Concomitant]
  5. TRILIPIX [Concomitant]
  6. LISINOPRIL [Concomitant]
  7. ALFALFA [Concomitant]
  8. MULTI-VITAMIN [Concomitant]
  9. COQ10 [Concomitant]
  10. CALCIUM [Concomitant]

REACTIONS (1)
  - CONSTIPATION [None]
